FAERS Safety Report 6892347-4 (Version None)
Quarter: 2010Q3

REPORT INFORMATION
  Report Type: 
  Country: None (occurrence: None)
  Receive Date: 20100731
  Receipt Date: 20080406
  Transmission Date: 20110219
  Serious: No
  Sender: FDA-Public Use
  Company Number: US-PFIZER INC-2008030163

PATIENT
  Sex: Male
  Weight: 72.727 kg

DRUGS (2)
  1. FLAGYL [Suspect]
     Indication: ANORECTAL DISORDER
     Dates: start: 20080324, end: 20080405
  2. LISINOPRIL [Concomitant]
     Indication: HYPERTENSION

REACTIONS (3)
  - BALANCE DISORDER [None]
  - DIZZINESS [None]
  - HYPOAESTHESIA FACIAL [None]
